FAERS Safety Report 7644648-X (Version None)
Quarter: 2011Q3

REPORT INFORMATION
  Report Type: 
  Country: None (occurrence: None)
  Receive Date: 20110729
  Receipt Date: 20110726
  Transmission Date: 20111222
  Serious: Yes (Other)
  Sender: FDA-Public Use
  Company Number: BR-PFIZER INC-2011170755

PATIENT
  Age: 28 Year
  Sex: Male
  Weight: 100 kg

DRUGS (2)
  1. PARACETAMOL [Concomitant]
     Indication: HEADACHE
  2. ADVIL LIQUI-GELS [Suspect]
     Indication: HEADACHE
     Dosage: 1 TABLET OF 200MG, UNSPECIFIED FREQUENCY
     Route: 048
     Dates: start: 20110726

REACTIONS (3)
  - EYE SWELLING [None]
  - DYSPNOEA [None]
  - HYPERSENSITIVITY [None]
